FAERS Safety Report 8477866-1 (Version None)
Quarter: 2012Q2

REPORT INFORMATION
  Report Type: 
  Country: None (occurrence: None)
  Receive Date: 20120629
  Receipt Date: 20120622
  Transmission Date: 20120825
  Serious: Yes (Hospitalization, Other)
  Sender: FDA-Public Use
  Company Number: US-B.I. PHARMACEUTICALS,INC./RIDGEFIELD-2012-EU-03281GD

PATIENT
  Age: 64 Year
  Sex: Male

DRUGS (3)
  1. ALTEPLASE [Suspect]
     Indication: CEREBRAL INFARCTION
  2. ALTEPLASE [Suspect]
     Indication: ISCHAEMIC STROKE
     Route: 042
  3. DABIGATRAN [Suspect]
     Dosage: 300 MG

REACTIONS (3)
  - ECCHYMOSIS [None]
  - CEREBRAL INFARCTION [None]
  - ISCHAEMIC STROKE [None]
